FAERS Safety Report 20166095 (Version 1)
Quarter: 2021Q4

REPORT INFORMATION
  Report Type: Spontaneous
  Country: IN (occurrence: IN)
  Receive Date: 20211209
  Receipt Date: 20211209
  Transmission Date: 20220303
  Serious: Yes (Other)
  Sender: FDA-Public Use
  Company Number: IN-MYLANLABS-2021M1090877

PATIENT
  Sex: Female

DRUGS (3)
  1. DEXAMETHASONE [Suspect]
     Active Substance: DEXAMETHASONE
     Indication: Maternal therapy to enhance foetal lung maturity
     Dosage: 12 MILLIGRAM, BID, FOUR DOSES
     Route: 064
  2. CARBOPLATIN [Suspect]
     Active Substance: CARBOPLATIN
     Indication: Pinealoblastoma
     Dosage: UNK, CYCLE
     Route: 064
  3. ETOPOSIDE [Suspect]
     Active Substance: ETOPOSIDE
     Indication: Pinealoblastoma
     Dosage: UNK, CYCLE
     Route: 064

REACTIONS (2)
  - Foetal growth restriction [Unknown]
  - Foetal exposure during pregnancy [Recovered/Resolved]
